FAERS Safety Report 4743519-6 (Version None)
Quarter: 2005Q3

REPORT INFORMATION
  Report Type: 
  Country: None (occurrence: None)
  Receive Date: 20050809
  Receipt Date: 20050804
  Transmission Date: 20060218
  Serious: Yes (Hospitalization)
  Sender: FDA-Public Use
  Company Number: 200510528BFR

PATIENT
  Age: 64 Year
  Sex: Female
  Weight: 78 kg

DRUGS (6)
  1. CIPROFLOXACIN [Suspect]
     Indication: PYELONEPHRITIS ACUTE
     Dosage: INTRAVENOUS
     Route: 042
     Dates: start: 20040501, end: 20040503
  2. DIAMOX [Suspect]
     Dosage: ORAL
     Route: 048
     Dates: end: 20040503
  3. KETOPROFEN [Suspect]
     Indication: RENAL COLIC
     Dosage: INTRAVENOUS
     Route: 042
     Dates: start: 20040501, end: 20040503
  4. VASTAREL (TRIMETAZIDINE HYDROCHLORIDE) [Suspect]
     Indication: ANXIETY
     Dosage: ORAL
     Route: 048
     Dates: end: 20040503
  5. NICARDIPINE HCL [Suspect]
     Indication: HYPERTENSION
     Dosage: ORAL
     Route: 048
     Dates: end: 20040503
  6. ACETAMINOPHEN [Suspect]
     Indication: RENAL COLIC
     Dosage: INTRAVENOUS
     Route: 042
     Dates: start: 20040501, end: 20040503

REACTIONS (11)
  - CONDITION AGGRAVATED [None]
  - DRUG INEFFECTIVE [None]
  - ESCHERICHIA SEPSIS [None]
  - GENERAL PHYSICAL HEALTH DETERIORATION [None]
  - METABOLIC ACIDOSIS [None]
  - NEPHROLITHIASIS [None]
  - PYELONEPHRITIS [None]
  - RENAL FAILURE [None]
  - RESPIRATORY FAILURE [None]
  - SEPTIC SHOCK [None]
  - THROMBOCYTOPENIA [None]
